FAERS Safety Report 6651821-6 (Version None)
Quarter: 2010Q1

REPORT INFORMATION
  Report Type: 
  Country: None (occurrence: None)
  Receive Date: 20100325
  Receipt Date: 20100319
  Transmission Date: 20100710
  Serious: Yes (Hospitalization)
  Sender: FDA-Public Use
  Company Number: JP-PFIZER INC-2010009795

PATIENT
  Age: 75 Year
  Sex: Female
  Weight: 50.2 kg

DRUGS (6)
  1. SILDENAFIL CITRATE [Suspect]
     Indication: PULMONARY HYPERTENSION
     Dosage: 15 MG/DAY
     Route: 048
     Dates: start: 20090608, end: 20090611
  2. SILDENAFIL CITRATE [Suspect]
     Dosage: 30 MG/DAY
     Route: 048
     Dates: start: 20090612
  3. FERROMIA [Concomitant]
     Dosage: UNK
     Route: 048
  4. WARFARIN POTASSIUM [Concomitant]
     Dosage: UNK
     Route: 048
  5. LASIX [Concomitant]
     Dosage: UNK
     Route: 048
  6. SENNOSIDES [Concomitant]
     Dosage: UNK
     Route: 048

REACTIONS (1)
  - CARDIAC FAILURE CONGESTIVE [None]
